FAERS Safety Report 5270044-9 (Version None)
Quarter: 2007Q1

REPORT INFORMATION
  Report Type: 
  Country: None (occurrence: None)
  Receive Date: 20061214
  Receipt Date: 20060825
  Transmission Date: 20070707
  Serious: Yes (Hospitalization)
  Sender: FDA-Public Use
  Company Number: 2006063792

PATIENT
  Age: 55 Year
  Sex: Male
  Weight: 93.441 kg

DRUGS (5)
  1. BEXTRA [Suspect]
     Indication: EYE INFLAMMATION
     Dosage: 20 MG (20 MG, 1 IN 1 D), UNKNOWN
     Dates: start: 20040304
  2. ZOCOR [Concomitant]
  3. LISINOPRIL [Concomitant]
  4. PRILOSEC [Concomitant]
  5. PREVACID [Concomitant]

REACTIONS (1)
  - RENAL DISORDER [None]
